FAERS Safety Report 12454414 (Version 1)
Quarter: 2016Q2

REPORT INFORMATION
  Report Type: Spontaneous
  Country: JP (occurrence: JP)
  Receive Date: 20160610
  Receipt Date: 20160610
  Transmission Date: 20160815
  Serious: Yes (Other)
  Sender: FDA-Public Use
  Company Number: JP-ACCORD-041195

PATIENT
  Age: 79 Year
  Sex: Female

DRUGS (3)
  1. TRASTUZUMAB [Suspect]
     Active Substance: TRASTUZUMAB
     Indication: HER-2 POSITIVE GASTRIC CANCER
  2. CISPLATIN. [Suspect]
     Active Substance: CISPLATIN
     Indication: HER-2 POSITIVE GASTRIC CANCER
     Dosage: CISPLATIN (CDDP) DOSE WAS DECREASED TO 50% AFTER 1ST COURSE.
  3. CAPECITABINE. [Suspect]
     Active Substance: CAPECITABINE
     Indication: HER-2 POSITIVE GASTRIC CANCER
     Dosage: ONE-STEP DOSE REDUCTION BEFORE 4TH COURSE.

REACTIONS (2)
  - Stomatitis [Unknown]
  - Palmar-plantar erythrodysaesthesia syndrome [Recovered/Resolved]
